FAERS Safety Report 5723062-8 (Version None)
Quarter: 2008Q2

REPORT INFORMATION
  Report Type: 
  Country: None (occurrence: None)
  Receive Date: 20080430
  Receipt Date: 20080221
  Transmission Date: 20081010
  Serious: No
  Sender: FDA-Public Use
  Company Number: US-KINGPHARMUSA00001-K200800239

PATIENT

DRUGS (1)
  1. BICILLIN C-R 900/300 [Suspect]

REACTIONS (1)
  - INJECTION SITE PAIN [None]
